FAERS Safety Report 9881457 (Version 2)
Quarter: 2014Q2

REPORT INFORMATION
  Report Type: Report from Study
  Country: BR (occurrence: BR)
  Receive Date: 20140207
  Receipt Date: 20140428
  Transmission Date: 20141212
  Serious: Yes (Hospitalization, Other)
  Sender: FDA-Public Use
  Company Number: BR-ABBVIE-14P-020-1197724-00

PATIENT
  Age: 44 Year
  Sex: Female
  Weight: 58 kg

DRUGS (5)
  1. HUMIRA [Suspect]
     Indication: PSORIATIC ARTHROPATHY
     Route: 058
     Dates: end: 20140103
  2. HUMIRA [Suspect]
     Dates: start: 201402
  3. ALENIA [Concomitant]
     Indication: ASTHMA
     Dosage: ONCE DAILY, AS REQUIRED
     Route: 048
  4. RIVOTRIL [Concomitant]
     Indication: SLEEP DISORDER THERAPY
     Dosage: ONCE DAILY
     Route: 048
     Dates: start: 2004
  5. RIVOTRIL [Concomitant]
     Indication: ANXIETY

REACTIONS (9)
  - Gastrointestinal disorder [Recovering/Resolving]
  - Anaemia [Recovered/Resolved]
  - Malnutrition [Recovered/Resolved]
  - Weight decreased [Recovered/Resolved]
  - Pyrexia [Recovered/Resolved]
  - Suture rupture [Recovered/Resolved]
  - Patient-device incompatibility [Recovered/Resolved]
  - Abdominal hernia [Recovered/Resolved]
  - Gastrointestinal disorder [Recovered/Resolved]
